FAERS Safety Report 17766891 (Version 1)
Quarter: 2020Q2

REPORT INFORMATION
  Report Type: Spontaneous
  Country: US (occurrence: US)
  Receive Date: 20200511
  Receipt Date: 20200511
  Transmission Date: 20200714
  Serious: Yes (Hospitalization)
  Sender: FDA-Public Use
  Company Number: None

PATIENT
  Age: 11 Month
  Sex: Female
  Weight: 7.88 kg

DRUGS (3)
  1. PREDNISOLONE. [Concomitant]
     Active Substance: PREDNISOLONE
     Dates: start: 20200330
  2. ZOLGENSMA [Suspect]
     Active Substance: ONASEMNOGENE ABEPARVOVEC-XIOI
     Indication: SPINAL MUSCULAR ATROPHY
     Dosage: ?          OTHER FREQUENCY:1 TIME;?
     Route: 042
     Dates: start: 20200331, end: 20200331
  3. VITAMIN D3 [Concomitant]
     Active Substance: CHOLECALCIFEROL
     Dates: start: 20200325

REACTIONS (5)
  - Aspartate aminotransferase increased [None]
  - Activated partial thromboplastin time prolonged [None]
  - Gamma-glutamyltransferase increased [None]
  - Blood bilirubin increased [None]
  - Alanine aminotransferase increased [None]

NARRATIVE: CASE EVENT DATE: 20200504
